FAERS Safety Report 24147683 (Version 1)
Quarter: 2024Q3

REPORT INFORMATION
  Report Type: Spontaneous
  Country: JP (occurrence: JP)
  Receive Date: 20240729
  Receipt Date: 20240729
  Transmission Date: 20241017
  Serious: Yes (Hospitalization)
  Sender: ELI LILLY AND CO
  Company Number: JP-ELI_LILLY_AND_COMPANY-JP202407011504

PATIENT
  Age: 75 Year
  Sex: Female

DRUGS (2)
  1. CYRAMZA [Suspect]
     Active Substance: RAMUCIRUMAB
     Indication: Non-small cell lung cancer
     Route: 041
  2. ERLOTINIB [Concomitant]
     Active Substance: ERLOTINIB
     Indication: Non-small cell lung cancer

REACTIONS (2)
  - Hepatic function abnormal [Recovering/Resolving]
  - Skin disorder [Unknown]
